FAERS Safety Report 6500727-1 (Version None)
Quarter: 2009Q4

REPORT INFORMATION
  Report Type: 
  Country: None (occurrence: None)
  Receive Date: 20091216
  Receipt Date: 20090123
  Transmission Date: 20100525
  Serious: No
  Sender: FDA-Public Use
  Company Number: A0765035A

PATIENT
  Age: 26 Year
  Sex: Male

DRUGS (1)
  1. COMMIT [Suspect]
     Dates: start: 20090105

REACTIONS (3)
  - EXPIRED DRUG ADMINISTERED [None]
  - FLASHBACK [None]
  - NICOTINE DEPENDENCE [None]
